FAERS Safety Report 4621476-0 (Version None)
Quarter: 2005Q1

REPORT INFORMATION
  Report Type: 
  Country: None (occurrence: None)
  Receive Date: 20050329
  Receipt Date: 20050314
  Transmission Date: 20050727
  Serious: Yes (Hospitalization)
  Sender: FDA-Public Use
  Company Number: GXKR2005US00791

PATIENT
  Age: 76 Year
  Sex: Female

DRUGS (11)
  1. VERAPAMIL [Suspect]
     Indication: HYPERTENSION
     Dosage: 180 MG/DAY
  2. TELITHROMYCIN (TELITHROMYCIN) [Suspect]
     Indication: SINUSITIS
     Dosage: 800 MG/DAY
  3. ESOMEPRAZOLE (ESOMEPRAZOLE) [Concomitant]
  4. TELMISARTAN (TELMISARTAN) [Concomitant]
  5. FUROSEMIDE [Concomitant]
  6. MONTELUKAST (MONTELUKAST) [Concomitant]
  7. COLESVELAM (COLESVELAM) [Concomitant]
  8. OXAPROZIN [Concomitant]
  9. FLUTICAONSE (FLUTICASONE) [Concomitant]
  10. ALBUTEROL+IPRATROPIUM (IPRATROPIUM, SALBUTAMOL) [Concomitant]
  11. BUDESONIDE [Concomitant]

REACTIONS (12)
  - ASTHENIA [None]
  - BLOOD CREATINE PHOSPHOKINASE INCREASED [None]
  - BLOOD LACTIC ACID DECREASED [None]
  - BLOOD SODIUM DECREASED [None]
  - BRADYCARDIA [None]
  - CONFUSIONAL STATE [None]
  - DRUG INTERACTION [None]
  - DYSPNOEA [None]
  - HAEMOGLOBIN DECREASED [None]
  - HYPOTENSION [None]
  - LETHARGY [None]
  - PULMONARY EMBOLISM [None]
